FAERS Safety Report 20998386 (Version 1)
Quarter: 2022Q2

REPORT INFORMATION
  Report Type: Spontaneous
  Country: US (occurrence: US)
  Receive Date: 20220623
  Receipt Date: 20220623
  Transmission Date: 20220720
  Serious: No
  Sender: FDA-Public Use
  Company Number: US-BioDelivery Sciences International-2022BDSI0139

PATIENT
  Sex: Male

DRUGS (2)
  1. BELBUCA [Suspect]
     Active Substance: BUPRENORPHINE HYDROCHLORIDE
     Indication: Neuralgia
     Route: 002
     Dates: start: 20220405, end: 20220405
  2. BELBUCA [Suspect]
     Active Substance: BUPRENORPHINE HYDROCHLORIDE
     Dosage: HALF A FILM
     Route: 002
     Dates: start: 20220406, end: 20220406

REACTIONS (10)
  - Off label use [Unknown]
  - Nausea [Recovering/Resolving]
  - Visual impairment [Recovering/Resolving]
  - Balance disorder [Recovering/Resolving]
  - Dizziness [Not Recovered/Not Resolved]
  - Therapeutic response increased [Unknown]
  - Product communication issue [Recovered/Resolved]
  - Drug ineffective [Unknown]
  - Headache [Unknown]
  - Throat irritation [Not Recovered/Not Resolved]

NARRATIVE: CASE EVENT DATE: 20220401
